FAERS Safety Report 9888025 (Version 1)
Quarter: 2014Q1

REPORT INFORMATION
  Report Type: Report from Study
  Country: KR (occurrence: KR)
  Receive Date: 20140211
  Receipt Date: 20140211
  Transmission Date: 20141002
  Serious: No
  Sender: FDA-Public Use
  Company Number: PHHY2014KR016634

PATIENT
  Sex: Female

DRUGS (1)
  1. TASIGNA [Suspect]
     Indication: CHRONIC MYELOID LEUKAEMIA
     Dosage: 400 MG, DAILY (1 CAPSULE EACH IN MORNING AND EVENING)
     Route: 048
     Dates: start: 2012

REACTIONS (1)
  - Inappropriate schedule of drug administration [Unknown]
